FAERS Safety Report 7413321-5 (Version None)
Quarter: 2011Q2

REPORT INFORMATION
  Report Type: 
  Country: None (occurrence: None)
  Receive Date: 20110413
  Receipt Date: 20100519
  Transmission Date: 20111010
  Serious: No
  Sender: FDA-Public Use
  Company Number: US-ASTRAZENECA-2010SE23168

PATIENT
  Age: 65 Year
  Sex: Male

DRUGS (4)
  1. CRESTOR [Suspect]
     Route: 048
  2. ZESTRIL [Suspect]
     Route: 048
  3. NEXIUM [Concomitant]
     Route: 048
  4. TENORMIN [Suspect]

REACTIONS (6)
  - DYSPNOEA [None]
  - SOMNOLENCE [None]
  - NAUSEA [None]
  - GASTRIC DISORDER [None]
  - PHARYNGEAL OEDEMA [None]
  - SWOLLEN TONGUE [None]
